FAERS Safety Report 5489812-3 (Version None)
Quarter: 2007Q4

REPORT INFORMATION
  Report Type: 
  Country: None (occurrence: None)
  Receive Date: 20071018
  Receipt Date: 20071009
  Transmission Date: 20080405
  Serious: Yes (Other)
  Sender: FDA-Public Use
  Company Number: US-PFIZER INC-2007049816

PATIENT
  Sex: Female
  Weight: 63 kg

DRUGS (1)
  1. DEPO-MEDROL [Suspect]
     Dosage: TEXT:30 MG X 1
     Route: 042

REACTIONS (1)
  - INCORRECT ROUTE OF DRUG ADMINISTRATION [None]
